FAERS Safety Report 4745109-8 (Version None)
Quarter: 2005Q3

REPORT INFORMATION
  Report Type: 
  Country: None (occurrence: None)
  Receive Date: 20050812
  Receipt Date: 20050812
  Transmission Date: 20060218
  Serious: Yes (Life-Threatening, Hospitalization)
  Sender: FDA-Public Use
  Company Number: None

PATIENT
  Age: 85 Year
  Sex: Female
  Weight: 53 kg

DRUGS (4)
  1. LYMPHAZURIN [Suspect]
     Dosage: 5 ML, X1, INJECT
     Dates: start: 20050728
  2. VERSED [Concomitant]
  3. FENTANYL CITRATE [Concomitant]
  4. MORPHINE SULFATE [Concomitant]

REACTIONS (5)
  - BLOOD PRESSURE DECREASED [None]
  - BLOOD PRESSURE IMMEASURABLE [None]
  - ISCHAEMIA [None]
  - PROCEDURAL COMPLICATION [None]
  - PULSE PRESSURE DECREASED [None]
